FAERS Safety Report 5357252-3 (Version None)
Quarter: 2007Q2

REPORT INFORMATION
  Report Type: 
  Country: None (occurrence: None)
  Receive Date: 20070614
  Receipt Date: 20070606
  Transmission Date: 20071010
  Serious: Yes (Death, Other)
  Sender: FDA-Public Use
  Company Number: FR-ELI_LILLY_AND_COMPANY-FR200706001651

PATIENT
  Age: 20 Year
  Sex: Male
  Weight: 156 kg

DRUGS (1)
  1. SOMATROPIN [Suspect]
     Indication: GROWTH HORMONE DEFICIENCY
     Dosage: 1.4 MG, DAILY (1/D)
     Route: 058
     Dates: start: 20061027

REACTIONS (3)
  - CRANIOPHARYNGIOMA [None]
  - DEATH [None]
  - MENINGIOMA [None]
